FAERS Safety Report 7379964-2 (Version None)
Quarter: 2011Q1

REPORT INFORMATION
  Report Type: 
  Country: None (occurrence: None)
  Receive Date: 20110318
  Receipt Date: 20110304
  Transmission Date: 20110831
  Serious: Yes (Hospitalization)
  Sender: FDA-Public Use
  Company Number: 2011MA002190

PATIENT
  Age: 68 Year
  Sex: Male

DRUGS (9)
  1. NAPROXEN [Suspect]
     Dosage: 250 MG; BID; PO
     Route: 048
     Dates: start: 20110207, end: 20110217
  2. SIMVASTATIN [Concomitant]
  3. LEVOTHYROXINE SODIUM [Concomitant]
  4. IRBESARTAN [Concomitant]
  5. ACETYLSALICYLIC ACID SRT [Concomitant]
  6. OMEPRAZOLE [Suspect]
     Indication: PROPHYLAXIS
     Dosage: 20 MG; QD; PO
     Route: 048
     Dates: start: 20110207, end: 20110217
  7. BROMOCRIPTINE MESYLATE [Concomitant]
  8. QUININE SULFATE [Suspect]
     Indication: MUSCLE SPASMS
     Dosage: 200 MG; QD; PO
     Route: 048
     Dates: start: 20110106, end: 20110217
  9. AMLODIPINE [Concomitant]

REACTIONS (7)
  - PURPURA [None]
  - CONFUSIONAL STATE [None]
  - MOUTH ULCERATION [None]
  - RASH ERYTHEMATOUS [None]
  - DIARRHOEA [None]
  - VOMITING [None]
  - CONJUNCTIVITIS [None]
